FAERS Safety Report 12747786 (Version 1)
Quarter: 2016Q3

REPORT INFORMATION
  Report Type: Spontaneous
  Country: US (occurrence: US)
  Receive Date: 20160915
  Receipt Date: 20160915
  Transmission Date: 20161109
  Serious: No
  Sender: FDA-Public Use
  Company Number: US-JAZZ-2016-US-010092

PATIENT
  Sex: Male

DRUGS (8)
  1. RELORA [Concomitant]
  2. DILANTIN [Concomitant]
     Active Substance: PHENYTOIN
  3. XYREM [Suspect]
     Active Substance: SODIUM OXYBATE
     Dosage: 5 G, BID
     Route: 048
     Dates: start: 201205, end: 2015
  4. XYREM [Suspect]
     Active Substance: SODIUM OXYBATE
     Indication: INSOMNIA
     Dosage: 2.25 G, BID
     Route: 048
     Dates: start: 201006, end: 201012
  5. XYREM [Suspect]
     Active Substance: SODIUM OXYBATE
     Dosage: DOSE ADJUSTMENTS
     Route: 048
     Dates: start: 201012, end: 201205
  6. HCG ACTIVATOR [Concomitant]
  7. XYREM [Suspect]
     Active Substance: SODIUM OXYBATE
     Dosage: 5 G, BID
     Route: 048
     Dates: start: 201512
  8. DHEA [Concomitant]
     Active Substance: PRASTERONE

REACTIONS (1)
  - Nasopharyngitis [Not Recovered/Not Resolved]
